FAERS Safety Report 14194830 (Version 1)
Quarter: 2017Q4

REPORT INFORMATION
  Report Type: Spontaneous
  Country: CN (occurrence: CN)
  Receive Date: 20171116
  Receipt Date: 20171116
  Transmission Date: 20180321
  Serious: Yes (Hospitalization)
  Sender: FDA-Public Use
  Company Number: CN-ABBVIE-17P-035-2165380-00

PATIENT
  Age: 36 Year
  Sex: Male

DRUGS (2)
  1. DEPAKINE [Suspect]
     Active Substance: VALPROATE SODIUM
     Route: 050
     Dates: start: 20170813
  2. DEPAKINE [Suspect]
     Active Substance: VALPROATE SODIUM
     Indication: EPILEPSY
     Route: 050
     Dates: start: 20170715, end: 20170813

REACTIONS (2)
  - Hyperammonaemia [Recovering/Resolving]
  - Blood lactic acid increased [Unknown]

NARRATIVE: CASE EVENT DATE: 20170729
